FAERS Safety Report 20764537 (Version 1)
Quarter: 2022Q2

REPORT INFORMATION
  Report Type: Spontaneous
  Country: US (occurrence: US)
  Receive Date: 20220428
  Receipt Date: 20220428
  Transmission Date: 20220721
  Serious: No
  Sender: FDA-Public Use
  Company Number: US-TAKEDA-2022TUS027891

PATIENT
  Sex: Female
  Weight: 54 kg

DRUGS (1)
  1. PENTASA [Suspect]
     Active Substance: MESALAMINE
     Indication: Crohn^s disease
     Dosage: 500 MILLIGRAM, BID
     Route: 048
     Dates: start: 202101

REACTIONS (10)
  - Inflammation [Unknown]
  - Abdominal discomfort [Unknown]
  - Abdominal distension [Recovered/Resolved]
  - Flatulence [Recovered/Resolved]
  - Diarrhoea [Unknown]
  - Constipation [Unknown]
  - Dyspepsia [Recovered/Resolved]
  - Food intolerance [Unknown]
  - Feeling abnormal [Unknown]
  - Incorrect dose administered [Unknown]

NARRATIVE: CASE EVENT DATE: 20210101
